FAERS Safety Report 7646425-2 (Version None)
Quarter: 2011Q3

REPORT INFORMATION
  Report Type: 
  Country: None (occurrence: None)
  Receive Date: 20110801
  Receipt Date: 20110720
  Transmission Date: 20111222
  Serious: Yes (Hospitalization)
  Sender: FDA-Public Use
  Company Number: CA-JNJFOC-20110709356

PATIENT
  Weight: 85 kg

DRUGS (6)
  1. REMICADE [Suspect]
     Route: 042
     Dates: start: 20110720
  2. QUESTRAN [Concomitant]
  3. VITAMIN B [Concomitant]
     Route: 050
  4. CALCIUM CARBONATE [Concomitant]
  5. REMICADE [Suspect]
     Route: 042
     Dates: start: 20110601
  6. REMICADE [Suspect]
     Indication: CROHN'S DISEASE
     Route: 042
     Dates: start: 20100329

REACTIONS (1)
  - NEPHROLITHIASIS [None]
